FAERS Safety Report 4752395-7 (Version None)
Quarter: 2005Q3

REPORT INFORMATION
  Report Type: 
  Country: None (occurrence: None)
  Receive Date: 20050825
  Receipt Date: 20050817
  Transmission Date: 20060218
  Serious: Yes (Disabling)
  Sender: FDA-Public Use
  Company Number: PHNR2005AU01288

PATIENT
  Age: 56 Year
  Sex: Female
  Weight: 73 kg

DRUGS (1)
  1. ZOMETA [Suspect]
     Dosage: 4.0 MG/MONTH
     Route: 042
     Dates: start: 20020228, end: 20050210

REACTIONS (1)
  - ASEPTIC NECROSIS BONE [None]
